FAERS Safety Report 25928336 (Version 1)
Quarter: 2025Q4

REPORT INFORMATION
  Report Type: Spontaneous
  Country: GB (occurrence: GB)
  Receive Date: 20251016
  Receipt Date: 20251016
  Transmission Date: 20260118
  Serious: Yes (Hospitalization, Other)
  Sender: RIGEL PHARMACEUTICALS
  Company Number: None

PATIENT
  Sex: Male

DRUGS (1)
  1. FOSTAMATINIB DISODIUM [Suspect]
     Active Substance: FOSTAMATINIB DISODIUM
     Indication: Product used for unknown indication
     Dosage: UNK

REACTIONS (1)
  - COVID-19 [Unknown]
